FAERS Safety Report 15748346 (Version 1)
Quarter: 2018Q4

REPORT INFORMATION
  Report Type: Spontaneous
  Country: US (occurrence: US)
  Receive Date: 20181221
  Receipt Date: 20181221
  Transmission Date: 20190205
  Serious: Yes (Hospitalization, Other)
  Sender: FDA-Public Use
  Company Number: US-APOTEX-2018AP020134

PATIENT
  Age: 11 Year
  Sex: Female

DRUGS (2)
  1. CIPROFLOXACIN. [Suspect]
     Active Substance: CIPROFLOXACIN
     Indication: TULARAEMIA
     Dosage: UNK
     Route: 065
  2. GENTAMYCIN                         /00047101/ [Concomitant]
     Active Substance: GENTAMICIN
     Indication: TULARAEMIA
     Dosage: UNK
     Route: 042

REACTIONS (1)
  - Idiopathic intracranial hypertension [Recovered/Resolved]
